FAERS Safety Report 19153193 (Version 1)
Quarter: 2021Q2

REPORT INFORMATION
  Report Type: Spontaneous
  Country: US (occurrence: US)
  Receive Date: 20210418
  Receipt Date: 20210418
  Transmission Date: 20210717
  Serious: No
  Sender: FDA-Public Use
  Company Number: None

PATIENT
  Age: 48 Year
  Sex: Female
  Weight: 126 kg

DRUGS (14)
  1. BYSTOLIC [Concomitant]
     Active Substance: NEBIVOLOL HYDROCHLORIDE
  2. TYLENOL WITH CODEINE [Concomitant]
     Active Substance: ACETAMINOPHEN\CODEINE PHOSPHATE
  3. TYLENOL [Concomitant]
     Active Substance: ACETAMINOPHEN
  4. SUDAFED PE CONGESTION [Concomitant]
     Active Substance: PHENYLEPHRINE HYDROCHLORIDE
  5. LIPITOR [Concomitant]
     Active Substance: ATORVASTATIN CALCIUM
  6. FLUTICASONE. [Concomitant]
     Active Substance: FLUTICASONE
  7. PANTOPRAZOLE [Concomitant]
     Active Substance: PANTOPRAZOLE
  8. TIZANIDINE. [Concomitant]
     Active Substance: TIZANIDINE
  9. METFORMIN [Concomitant]
     Active Substance: METFORMIN HYDROCHLORIDE
  10. ALBUTEROL. [Concomitant]
     Active Substance: ALBUTEROL
  11. AMITRIPTYLINE [Suspect]
     Active Substance: AMITRIPTYLINE
     Indication: OFF LABEL USE
     Route: 048
     Dates: start: 20200501, end: 20200515
  12. SINGULAIR [Concomitant]
     Active Substance: MONTELUKAST SODIUM
  13. LEXAPRO [Concomitant]
     Active Substance: ESCITALOPRAM OXALATE
  14. HYDROXYZINE [Concomitant]
     Active Substance: HYDROXYZINE HYDROCHLORIDE

REACTIONS (2)
  - Headache [None]
  - Cerebrovascular accident [None]

NARRATIVE: CASE EVENT DATE: 20200501
